FAERS Safety Report 5419722-9 (Version None)
Quarter: 2007Q3

REPORT INFORMATION
  Report Type: 
  Country: None (occurrence: None)
  Receive Date: 20070820
  Receipt Date: 20070813
  Transmission Date: 20080115
  Serious: Yes (Other)
  Sender: FDA-Public Use
  Company Number: PHBS2007PH13455

PATIENT
  Age: 58 Year
  Sex: Male

DRUGS (3)
  1. IBANDRONATE SODIUM [Suspect]
     Indication: METASTASES TO BONE
  2. SUNITINIB MALATE [Concomitant]
     Indication: RENAL CELL CARCINOMA STAGE UNSPECIFIED
  3. ZOMETA [Suspect]
     Indication: METASTASES TO BONE
     Dates: start: 20050901, end: 20070601

REACTIONS (3)
  - IMPAIRED HEALING [None]
  - MOUTH ULCERATION [None]
  - OSTEONECROSIS [None]
